FAERS Safety Report 10083606 (Version 1)
Quarter: 2014Q2

REPORT INFORMATION
  Report Type: Spontaneous
  Country: US (occurrence: None)
  Receive Date: 20140416
  Receipt Date: 20140416
  Transmission Date: 20141212
  Serious: No
  Sender: FDA-Public Use
  Company Number: None

PATIENT
  Age: 51 Year
  Sex: Male
  Weight: 79.38 kg

DRUGS (2)
  1. SMZ/TMP DS 800-160 [Suspect]
     Indication: LOWER RESPIRATORY TRACT INFECTION
     Route: 048
     Dates: start: 20140402
  2. IBUPROFEN [Concomitant]

REACTIONS (3)
  - Rash [None]
  - Insomnia [None]
  - Feeling jittery [None]
